FAERS Safety Report 8086293-0 (Version None)
Quarter: 2012Q1

REPORT INFORMATION
  Report Type: 
  Country: None (occurrence: None)
  Receive Date: 20120128
  Receipt Date: 20110428
  Transmission Date: 20120608
  Serious: No
  Sender: FDA-Public Use
  Company Number: US-ABBOTT-11P-163-0722512-00

PATIENT
  Age: 39 Year
  Sex: Female

DRUGS (8)
  1. GENERIC LIBRAX [Concomitant]
     Indication: IRRITABLE BOWEL SYNDROME
     Dosage: 1-2 DAILY
  2. PROBIOTIC [Concomitant]
     Indication: PRODUCT USED FOR UNKNOWN INDICATION
  3. IMODIUM [Concomitant]
     Indication: DIARRHOEA
  4. HUMIRA [Suspect]
     Dosage: LOADING DOSE OF 4 PENS
     Dates: start: 20110406
  5. SIMETHICONE [Concomitant]
     Indication: FLATULENCE
     Dosage: UP TO 10 DAILY
  6. HUMIRA [Suspect]
     Indication: CROHN'S DISEASE
     Dates: start: 20070101, end: 20090101
  7. PROBIOTICS [Concomitant]
     Indication: PRODUCT USED FOR UNKNOWN INDICATION
  8. ASACOL [Concomitant]
     Indication: PRODUCT USED FOR UNKNOWN INDICATION

REACTIONS (8)
  - INFLUENZA [None]
  - HYPERHIDROSIS [None]
  - CROHN'S DISEASE [None]
  - ABDOMINAL PAIN [None]
  - MYALGIA [None]
  - FLATULENCE [None]
  - PYREXIA [None]
  - DIARRHOEA [None]
